FAERS Safety Report 24314482 (Version 6)
Quarter: 2024Q4

REPORT INFORMATION
  Report Type: Spontaneous
  Country: US (occurrence: US)
  Receive Date: 20240913
  Receipt Date: 20241011
  Transmission Date: 20250115
  Serious: No
  Sender: ROCHE
  Company Number: US-ROCHE-10000076880

PATIENT
  Sex: Female

DRUGS (1)
  1. ACTEMRA ACTPEN [Suspect]
     Active Substance: TOCILIZUMAB
     Indication: Rheumatoid arthritis
     Route: 058
     Dates: start: 201812, end: 20240831

REACTIONS (6)
  - Contusion [Unknown]
  - Device malfunction [Unknown]
  - Device defective [Unknown]
  - Haemorrhage [Unknown]
  - Accidental exposure to product [Unknown]
  - Underdose [Unknown]
